FAERS Safety Report 11664252 (Version 1)
Quarter: 2015Q4

REPORT INFORMATION
  Report Type: Report from Study
  Country: US (occurrence: US)
  Receive Date: 20151027
  Receipt Date: 20151027
  Transmission Date: 20160304
  Serious: Yes (Death, Other)
  Sender: FDA-Public Use
  Company Number: PHEH2015US003782

PATIENT
  Sex: Male

DRUGS (1)
  1. EXJADE [Suspect]
     Active Substance: DEFERASIROX
     Indication: 5Q MINUS SYNDROME
     Route: 065

REACTIONS (2)
  - Gastrointestinal haemorrhage [Fatal]
  - Platelet count decreased [Unknown]
